FAERS Safety Report 8120337 (Version 3)
Quarter: 2012Q4

REPORT INFORMATION
  Report Type: Spontaneous
  Country: US (occurrence: None)
  Receive Date: 20110824
  Receipt Date: 20121220
  Transmission Date: 20130627
  Serious: Yes (Death)
  Sender: FDA-Public Use
  Company Number: 2011-336

PATIENT
  Age: 90 Year
  Sex: Female

DRUGS (2)
  1. PRIALT [Suspect]
     Indication: PAIN
     Dosage: UG, ONCE/HOUR, INTRATHECAL
     Route: 037
     Dates: end: 20110718
  2. MORPHINE SULFATE [Suspect]
     Dosage: MG, ONCE/HOUR, INTRATHECAL
     Route: 037
     Dates: end: 20110718

REACTIONS (6)
  - Pneumonia aspiration [None]
  - Dysphagia [None]
  - Chronic obstructive pulmonary disease [None]
  - Failure to thrive [None]
  - Quality of life decreased [None]
  - Respiratory distress [None]
